FAERS Safety Report 5444677-0 (Version None)
Quarter: 2007Q3

REPORT INFORMATION
  Report Type: 
  Country: None (occurrence: None)
  Receive Date: 20070906
  Receipt Date: 20070125
  Transmission Date: 20080115
  Serious: No
  Sender: FDA-Public Use
  Company Number: A0637049A

PATIENT
  Age: 61 Year
  Sex: Female

DRUGS (8)
  1. REQUIP [Suspect]
     Indication: RESTLESS LEGS SYNDROME
     Route: 048
  2. PAROXETINE [Concomitant]
  3. PREVACID [Concomitant]
  4. HYDROCODONE BITARTRATE [Concomitant]
  5. SYNTHROID [Concomitant]
  6. ACTONEL [Concomitant]
  7. XANAX [Concomitant]
  8. VYTORIN [Concomitant]

REACTIONS (1)
  - DRUG INEFFECTIVE [None]
